FAERS Safety Report 23085084 (Version 3)
Quarter: 2023Q4

REPORT INFORMATION
  Report Type: Spontaneous
  Country: FI (occurrence: FI)
  Receive Date: 20231019
  Receipt Date: 20231110
  Transmission Date: 20240109
  Serious: Yes (Death, Hospitalization, Other)
  Sender: FDA-Public Use
  Company Number: FI-009507513-2310FIN008425

PATIENT
  Age: 41 Year
  Sex: Male

DRUGS (1)
  1. KEYTRUDA [Suspect]
     Active Substance: PEMBROLIZUMAB
     Indication: Lung squamous cell carcinoma metastatic
     Dosage: 200 MILLIGRAM
     Dates: start: 20230620, end: 20230711

REACTIONS (14)
  - Death [Fatal]
  - Pyrexia [Unknown]
  - C-reactive protein increased [Unknown]
  - Pyrexia [Unknown]
  - Malignant neoplasm progression [Unknown]
  - Pulmonary embolism [Unknown]
  - Splenic infarction [Unknown]
  - Renal infarct [Unknown]
  - Myocardial infarction [Unknown]
  - Deep vein thrombosis [Unknown]
  - Troponin T increased [Unknown]
  - Blood thyroid stimulating hormone decreased [Unknown]
  - Balance disorder [Unknown]
  - Pyrexia [Unknown]

NARRATIVE: CASE EVENT DATE: 20230709
